FAERS Safety Report 10165949 (Version 1)
Quarter: 2014Q2

REPORT INFORMATION
  Report Type: Spontaneous
  Country: US (occurrence: US)
  Receive Date: 20140510
  Receipt Date: 20140510
  Transmission Date: 20141212
  Serious: Yes (Other)
  Sender: FDA-Public Use
  Company Number: US-MYLANLABS-2014S1010186

PATIENT
  Age: 5 Decade
  Sex: Male

DRUGS (2)
  1. VORICONAZOLE [Suspect]
     Indication: ASPERGILLOMA
     Route: 065
  2. PREDNISONE [Suspect]
     Indication: PULMONARY SARCOIDOSIS
     Dosage: LONG-TERM THERAPY OF VARYING DOSES OF UP TO 60 MG/DAY
     Route: 065
     Dates: start: 2008

REACTIONS (1)
  - Lentigo [Recovered/Resolved]
